FAERS Safety Report 8440589-9 (Version None)
Quarter: 2012Q2

REPORT INFORMATION
  Report Type: 
  Country: None (occurrence: None)
  Receive Date: 20120615
  Receipt Date: 20120605
  Transmission Date: 20120825
  Serious: Yes (Hospitalization)
  Sender: FDA-Public Use
  Company Number: US-BAYER-2012-055516

PATIENT
  Age: 38 Year
  Sex: Female
  Weight: 78 kg

DRUGS (21)
  1. VALIUM [Concomitant]
  2. POTASSIUM CHLORIDE [Concomitant]
  3. YAZ [Suspect]
     Indication: CONTRACEPTION
     Dosage: UNK
     Dates: start: 20090423, end: 20090722
  4. MAXALT-MLT [Concomitant]
     Indication: MIGRAINE
     Dosage: 10 MG, UNK
     Route: 048
  5. COLACE [Concomitant]
  6. DROSPIRENONE AND ETHINYL ESTRADIOL [Suspect]
     Indication: PREMENSTRUAL SYNDROME
  7. EPHEDRINE [Concomitant]
     Indication: MIGRAINE
     Dosage: 2 PILLS
  8. EXCEDRIN (MIGRAINE) [Concomitant]
     Route: 048
  9. TOPAMAX [Concomitant]
     Dosage: 25 MG, BID, DAILY
     Route: 048
  10. YAZ [Suspect]
     Indication: PREMENSTRUAL SYNDROME
  11. TYLENOL PM [Concomitant]
     Route: 048
  12. NIFEREX [Concomitant]
  13. TYLENOL ES [Concomitant]
     Route: 048
  14. OXYCONTIN [Concomitant]
  15. YASMIN [Suspect]
  16. REGLAN [Concomitant]
  17. DROSPIRENONE AND ETHINYL ESTRADIOL [Suspect]
     Indication: CONTRACEPTION
     Dosage: UNK
     Dates: start: 20090723, end: 20091004
  18. DILAUDID [Concomitant]
  19. EXCEDRIN TENSION HEADACHE CAPLETS [Concomitant]
     Route: 048
  20. TOPIRAMATE [Concomitant]
     Dosage: 50 MG, UNK
     Route: 048
  21. NORCO [Concomitant]

REACTIONS (12)
  - PULMONARY EMBOLISM [None]
  - LUNG INFILTRATION [None]
  - NAUSEA [None]
  - PNEUMONIA [None]
  - PLEURAL EFFUSION [None]
  - ATELECTASIS [None]
  - DYSPNOEA [None]
  - INJURY [None]
  - PAIN [None]
  - VOMITING [None]
  - FLANK PAIN [None]
  - ADNEXA UTERI CYST [None]
